FAERS Safety Report 18076360 (Version 4)
Quarter: 2024Q1

REPORT INFORMATION
  Report Type: Report from Study
  Country: JP (occurrence: JP)
  Receive Date: 20200728
  Receipt Date: 20240123
  Transmission Date: 20240410
  Serious: Yes (Hospitalization, Other)
  Sender: FDA-Public Use
  Company Number: JP-CELLTRION INC.-2020JP024604

PATIENT

DRUGS (21)
  1. INFLIXIMAB [Suspect]
     Active Substance: INFLIXIMAB
     Indication: Colitis ulcerative
     Dosage: 395 MG
     Route: 041
     Dates: start: 20181010, end: 20181010
  2. INFLIXIMAB [Suspect]
     Active Substance: INFLIXIMAB
     Dosage: 385 MG
     Route: 041
     Dates: start: 20191016, end: 20191016
  3. INFLIXIMAB [Suspect]
     Active Substance: INFLIXIMAB
     Dosage: 395 MG
     Route: 041
     Dates: start: 20181205, end: 20181205
  4. INFLIXIMAB [Suspect]
     Active Substance: INFLIXIMAB
     Dosage: 390 MG
     Route: 041
     Dates: start: 20190130, end: 20190130
  5. INFLIXIMAB [Suspect]
     Active Substance: INFLIXIMAB
     Dosage: 385 MG
     Route: 041
     Dates: start: 20190320, end: 20190320
  6. INFLIXIMAB [Suspect]
     Active Substance: INFLIXIMAB
     Dosage: 380 MG
     Route: 041
     Dates: start: 20201110, end: 20201110
  7. INFLIXIMAB [Suspect]
     Active Substance: INFLIXIMAB
     Dosage: 385 MG
     Route: 041
     Dates: start: 20211109, end: 20211109
  8. INFLIXIMAB [Suspect]
     Active Substance: INFLIXIMAB
     Dosage: 390 MG
     Route: 041
     Dates: start: 20221108, end: 20221109
  9. INFLIXIMAB [Suspect]
     Active Substance: INFLIXIMAB
     Dosage: 385 MG
     Route: 041
     Dates: start: 20231003, end: 20231003
  10. AZATHIOPRINE [Concomitant]
     Active Substance: AZATHIOPRINE
     Indication: Colitis ulcerative
     Dosage: 100MG/DAY
     Route: 048
     Dates: start: 20170201, end: 20190618
  11. AZATHIOPRINE [Concomitant]
     Active Substance: AZATHIOPRINE
     Dosage: 125 MG/DAY
     Route: 048
     Dates: start: 20190619, end: 20191015
  12. AZATHIOPRINE [Concomitant]
     Active Substance: AZATHIOPRINE
     Dosage: 150MG/DAY
     Route: 048
     Dates: start: 20191016
  13. BUDESONIDE [Concomitant]
     Active Substance: BUDESONIDE
     Indication: Colitis ulcerative
     Dosage: 4 MG/DAY
     Route: 054
     Dates: start: 20191016, end: 20191126
  14. BUDESONIDE [Concomitant]
     Active Substance: BUDESONIDE
     Dosage: 4 MG/DAY
     Route: 054
     Dates: start: 20200707, end: 20200805
  15. BUDESONIDE [Concomitant]
     Active Substance: BUDESONIDE
     Dosage: 4 MG/DAY
     Route: 054
     Dates: start: 20190417, end: 20190521
  16. BUDESONIDE [Concomitant]
     Active Substance: BUDESONIDE
     Dosage: 4 MG/DAY
     Route: 054
     Dates: start: 20230110, end: 20230207
  17. BUDESONIDE [Concomitant]
     Active Substance: BUDESONIDE
     Dosage: 4 MG/DAY
     Route: 054
     Dates: start: 20230307, end: 20230404
  18. MESALAMINE [Concomitant]
     Active Substance: MESALAMINE
     Indication: Colitis ulcerative
     Dosage: 4000 MG/DAY
     Route: 048
     Dates: end: 20190416
  19. MESALAMINE [Concomitant]
     Active Substance: MESALAMINE
     Dosage: 4800 MG/DAY
     Route: 048
     Dates: start: 20190417
  20. MESALAMINE [Concomitant]
     Active Substance: MESALAMINE
     Dosage: 1 GRAM/DAY
     Route: 054
     Dates: start: 20230509, end: 20230619
  21. MESALAMINE [Concomitant]
     Active Substance: MESALAMINE
     Dosage: UNK
     Route: 054
     Dates: start: 20230620

REACTIONS (8)
  - Pneumothorax spontaneous [Recovered/Resolved]
  - Large intestine polyp [Recovered/Resolved]
  - Colitis ulcerative [Unknown]
  - Acne [Not Recovered/Not Resolved]
  - Gastrooesophageal reflux disease [Not Recovered/Not Resolved]
  - Nasopharyngitis [Recovered/Resolved]
  - Rash [Not Recovered/Not Resolved]
  - Product use issue [Unknown]

NARRATIVE: CASE EVENT DATE: 20181220
